FAERS Safety Report 7648512-1 (Version None)
Quarter: 2011Q3

REPORT INFORMATION
  Report Type: 
  Country: None (occurrence: None)
  Receive Date: 20110801
  Receipt Date: 20110728
  Transmission Date: 20111222
  Serious: Yes (Death)
  Sender: FDA-Public Use
  Company Number: US-B.I. PHARMACEUTICALS,INC./RIDGEFIELD-2011-BP-18641BP

PATIENT
  Age: 89 Year
  Sex: Female

DRUGS (8)
  1. LASIX [Concomitant]
     Indication: HYPERTENSION
  2. SPIRIVA [Concomitant]
     Indication: CHRONIC OBSTRUCTIVE PULMONARY DISEASE
  3. SYNTHROID [Concomitant]
     Indication: HYPOTHYROIDISM
  4. PRADAXA [Suspect]
     Indication: ATRIAL FIBRILLATION
     Dosage: 300 MG
     Route: 048
     Dates: start: 20110201, end: 20110701
  5. ADVAIR DISKUS 100/50 [Concomitant]
     Indication: CHRONIC OBSTRUCTIVE PULMONARY DISEASE
  6. XANAX [Concomitant]
     Indication: ANXIETY
  7. CARDIZEM CD [Concomitant]
     Indication: HYPERTENSION
  8. LISINOPRIL [Concomitant]
     Indication: HYPERTENSION

REACTIONS (1)
  - HAEMORRHAGE INTRACRANIAL [None]
